FAERS Safety Report 25499200 (Version 4)
Quarter: 2025Q3

REPORT INFORMATION
  Report Type: Spontaneous
  Country: US (occurrence: US)
  Receive Date: 20250701
  Receipt Date: 20250815
  Transmission Date: 20251020
  Serious: No
  Sender: PFIZER
  Company Number: US-PFIZER INC-202500125416

PATIENT
  Age: 15 Year
  Sex: Female

DRUGS (1)
  1. GENOTROPIN [Suspect]
     Active Substance: SOMATROPIN
     Indication: Growth hormone deficiency
     Dosage: 1 MG, DAILY (NIGHT TIME, BEFORE SLEEPING)

REACTIONS (5)
  - Device mechanical issue [Unknown]
  - Device information output issue [Unknown]
  - Device chemical property issue [Unknown]
  - Device use error [Unknown]
  - Drug dose omission by device [Unknown]
